FAERS Safety Report 25413106 (Version 1)
Quarter: 2025Q2

REPORT INFORMATION
  Report Type: Report from Study
  Country: IT (occurrence: IT)
  Receive Date: 20250609
  Receipt Date: 20250609
  Transmission Date: 20250717
  Serious: Yes (Other)
  Sender: BAYER HEALTHCARE PHARMACEUTICALS INC.
  Company Number: IT-TEVA-2020-IT-1843641

PATIENT

DRUGS (4)
  1. REGORAFENIB [Suspect]
     Active Substance: REGORAFENIB
     Indication: Hepatocellular carcinoma
     Dosage: 160 MG, QD
     Route: 048
  2. SORAFENIB [Suspect]
     Active Substance: SORAFENIB
  3. SIROLIMUS [Interacting]
     Active Substance: SIROLIMUS
     Indication: Immunosuppressant drug therapy
  4. TACROLIMUS [Interacting]
     Active Substance: TACROLIMUS
     Indication: Immunosuppressant drug therapy

REACTIONS (5)
  - Blood alkaline phosphatase increased [Recovered/Resolved]
  - Alanine aminotransferase increased [Recovered/Resolved]
  - Hepatotoxicity [Recovered/Resolved]
  - Drug interaction [Recovered/Resolved]
  - Immunosuppressant drug level increased [Unknown]
